FAERS Safety Report 8830516 (Version 4)
Quarter: 2013Q2

REPORT INFORMATION
  Report Type: Spontaneous
  Country: JP (occurrence: JP)
  Receive Date: 20121009
  Receipt Date: 20130627
  Transmission Date: 20140414
  Serious: Yes (Death, Other)
  Sender: FDA-Public Use
  Company Number: JP-PFIZER INC-2012216483

PATIENT
  Age: 52 Year
  Sex: Female
  Weight: 42 kg

DRUGS (7)
  1. LYRICA [Suspect]
     Indication: NEURALGIA
     Dosage: 75 MG, 2X/DAY
     Route: 048
     Dates: start: 20120526, end: 20120531
  2. LYRICA [Suspect]
     Indication: BRACHIAL PLEXOPATHY
     Dosage: 75 MG, 1X/DAY
     Dates: start: 20120601, end: 20120602
  3. LYRICA [Suspect]
     Dosage: 25 MG, 1X/DAY
     Dates: start: 20120608, end: 20120609
  4. LEXAPRO [Suspect]
     Indication: ANXIETY
     Dosage: 10 MG, 1X/DAY
     Route: 048
     Dates: start: 20120417, end: 20120602
  5. LEXAPRO [Suspect]
     Dosage: 10 MG, 1X/DAY
     Route: 048
     Dates: start: 20120608, end: 20120620
  6. FENTOS TAPE [Suspect]
     Indication: CANCER PAIN
     Dosage: 6 MG, 1X/DAY
     Route: 062
     Dates: start: 20120425, end: 20120603
  7. TAKEPRON OD [Concomitant]
     Dosage: 15 MG, 1X/DAY
     Route: 048
     Dates: start: 20120525, end: 20120616

REACTIONS (7)
  - Breast cancer [Fatal]
  - Renal failure [Unknown]
  - Device occlusion [Unknown]
  - Myoclonus [Recovered/Resolved]
  - Somnolence [Unknown]
  - Dizziness [Unknown]
  - Affect lability [Unknown]
